FAERS Safety Report 12941299 (Version 1)
Quarter: 2016Q4

REPORT INFORMATION
  Report Type: Spontaneous
  Country: JP (occurrence: JP)
  Receive Date: 20161115
  Receipt Date: 20161115
  Transmission Date: 20170207
  Serious: Yes (Hospitalization, Other)
  Sender: FDA-Public Use
  Company Number: PHHY2016JP154220

PATIENT
  Age: 61 Year
  Sex: Female
  Weight: 45.15 kg

DRUGS (2)
  1. OCTREOTIDE. [Suspect]
     Active Substance: OCTREOTIDE
     Indication: PANCREATIC NEUROENDOCRINE TUMOUR METASTATIC
     Dosage: 20 MG, QMO
     Route: 065
  2. METYRAPONE [Concomitant]
     Active Substance: METYRAPONE
     Indication: HYPERADRENOCORTICISM
     Route: 065

REACTIONS (5)
  - Peritonitis [Unknown]
  - Metastases to gastrointestinal tract [Unknown]
  - Cholecystitis [Unknown]
  - Neoplasm progression [Unknown]
  - Malignant neoplasm progression [Unknown]
